FAERS Safety Report 7771763-2 (Version None)
Quarter: 2011Q3

REPORT INFORMATION
  Report Type: 
  Country: None (occurrence: None)
  Receive Date: 20110920
  Receipt Date: 20110908
  Transmission Date: 20111222
  Serious: Yes (Hospitalization)
  Sender: FDA-Public Use
  Company Number: 2011PV000050

PATIENT
  Age: 16 Year
  Sex: Female

DRUGS (4)
  1. DEPOCYT [Suspect]
     Indication: ACUTE MYELOID LEUKAEMIA
     Dosage: 35 MG; INTH
     Route: 037
     Dates: start: 20110420, end: 20110629
  2. CYTARABINE [Concomitant]
  3. DEXAMETHASONE [Concomitant]
  4. THIOGUANINE [Concomitant]

REACTIONS (4)
  - DIPLOPIA [None]
  - PAPILLOEDEMA [None]
  - VISION BLURRED [None]
  - HEADACHE [None]
